FAERS Safety Report 5359431-8 (Version None)
Quarter: 2007Q2

REPORT INFORMATION
  Report Type: 
  Country: None (occurrence: None)
  Receive Date: 20070615
  Receipt Date: 20070606
  Transmission Date: 20071010
  Serious: Yes (Other)
  Sender: FDA-Public Use
  Company Number: CL-PFIZER INC-2007038227

PATIENT
  Sex: Female

DRUGS (5)
  1. PREGABALIN [Suspect]
     Indication: PAIN
     Route: 048
     Dates: start: 20070405, end: 20070410
  2. TRAMADOL HCL [Concomitant]
     Route: 048
     Dates: start: 20070101, end: 20070401
  3. GLIMEPIRIDE [Concomitant]
     Route: 048
  4. VITAMIN CAP [Concomitant]
     Route: 048
  5. ACETYLSALICYLIC ACID SRT [Concomitant]
     Route: 048

REACTIONS (8)
  - AGITATION [None]
  - DIABETIC COMPLICATION [None]
  - DRUG INEFFECTIVE [None]
  - HALLUCINATION [None]
  - INSOMNIA [None]
  - LOGORRHOEA [None]
  - NIGHTMARE [None]
  - PSYCHOMOTOR HYPERACTIVITY [None]
